FAERS Safety Report 5165356-3 (Version None)
Quarter: 2006Q4

REPORT INFORMATION
  Report Type: 
  Country: None (occurrence: None)
  Receive Date: 20061206
  Receipt Date: 20060809
  Transmission Date: 20070319
  Serious: Yes (Hospitalization)
  Sender: FDA-Public Use
  Company Number: PHBS2006RU11951

PATIENT
  Age: 60 Year
  Sex: Female

DRUGS (1)
  1. MIACALCIN [Suspect]
     Indication: OSTEOPOROSIS
     Dosage: 200 IU/DAY
     Route: 045

REACTIONS (8)
  - ABDOMINAL PAIN [None]
  - BLOOD AMYLASE DECREASED [None]
  - DIARRHOEA [None]
  - PANCREATITIS ACUTE [None]
  - STOMACH DISCOMFORT [None]
  - ULTRASOUND SCAN ABNORMAL [None]
  - URINE AMYLASE INCREASED [None]
  - VOMITING [None]
